FAERS Safety Report 4304452-7 (Version None)
Quarter: 2004Q1

REPORT INFORMATION
  Report Type: 
  Country: None (occurrence: None)
  Receive Date: 20040225
  Receipt Date: 20040216
  Transmission Date: 20041129
  Serious: Yes (Other)
  Sender: FDA-Public Use
  Company Number: 04-02-0271

PATIENT
  Age: 40 Year
  Sex: Male

DRUGS (7)
  1. BACLOFEN [Suspect]
     Indication: MUSCLE SPASMS
     Dosage: 10MG QID ORAL
     Route: 048
  2. RISPERIDONE [Concomitant]
  3. BENDROFLUAZIDE [Concomitant]
  4. PERINDOPRIL [Concomitant]
  5. METFORMIN [Concomitant]
  6. ROSIGLITAZONE MALEATE [Concomitant]
  7. DIAZEPAM [Concomitant]

REACTIONS (1)
  - PSYCHOTIC DISORDER [None]
